FAERS Safety Report 7218033-9 (Version None)
Quarter: 2011Q1

REPORT INFORMATION
  Report Type: 
  Country: None (occurrence: None)
  Receive Date: 20110110
  Receipt Date: 20101228
  Transmission Date: 20110831
  Serious: Yes (Other)
  Sender: FDA-Public Use
  Company Number: US-CELGENEUS-163-21880-11010176

PATIENT
  Sex: Female

DRUGS (1)
  1. REVLIMID [Suspect]
     Indication: MULTIPLE MYELOMA
     Route: 048
     Dates: start: 20100901

REACTIONS (7)
  - MUSCLE SPASMS [None]
  - HAEMORRHAGE [None]
  - BLOOD UREA INCREASED [None]
  - CONSTIPATION [None]
  - HAEMOGLOBIN DECREASED [None]
  - FATIGUE [None]
  - FEELING HOT [None]
